FAERS Safety Report 23389431 (Version 2)
Quarter: 2024Q1

REPORT INFORMATION
  Report Type: Spontaneous
  Country: SE (occurrence: SE)
  Receive Date: 20240110
  Receipt Date: 20240215
  Transmission Date: 20240409
  Serious: Yes (Other)
  Sender: FDA-Public Use
  Company Number: SE-BRISTOL-MYERS SQUIBB COMPANY-2024-005234

PATIENT
  Age: 54 Year
  Sex: Female

DRUGS (2)
  1. ELIQUIS [Suspect]
     Active Substance: APIXABAN
     Indication: Embolism
     Dosage: DOSE : UNAVAILABLE; FREQ : UNAVAILABLE
  2. ELIQUIS [Suspect]
     Active Substance: APIXABAN
     Indication: Peripheral artery thrombosis

REACTIONS (1)
  - Retinopathy [Unknown]
